FAERS Safety Report 25587218 (Version 1)
Quarter: 2025Q3

REPORT INFORMATION
  Report Type: Spontaneous
  Country: US (occurrence: US)
  Receive Date: 20250721
  Receipt Date: 20250721
  Transmission Date: 20251020
  Serious: Yes (Life-Threatening, Hospitalization, Other)
  Sender: SANDOZ
  Company Number: US-SANDOZ-SDZ2025US051172

PATIENT
  Age: 41 Year
  Sex: Female

DRUGS (2)
  1. NELARABINE [Suspect]
     Active Substance: NELARABINE
     Indication: Product used for unknown indication
     Route: 042
  2. NELARABINE [Suspect]
     Active Substance: NELARABINE
     Route: 042

REACTIONS (1)
  - Rhabdomyolysis [Unknown]
